FAERS Safety Report 5959467-X (Version None)
Quarter: 2008Q4

REPORT INFORMATION
  Report Type: 
  Country: None (occurrence: None)
  Receive Date: 20081117
  Receipt Date: 20081105
  Transmission Date: 20090506
  Serious: Yes (Disabling, Other)
  Sender: FDA-Public Use
  Company Number: GXKR2008NL10610

PATIENT
  Age: 21 Year
  Weight: 1 kg

DRUGS (1)
  1. DEXAMETHASONE [Suspect]
     Indication: BRONCHOPULMONARY DYSPLASIA
     Dosage: 0.25 MG/KG, QD

REACTIONS (9)
  - BLOOD CORTISOL DECREASED [None]
  - BLOOD PRESSURE SYSTOLIC DECREASED [None]
  - BLOOD THYROID STIMULATING HORMONE DECREASED [None]
  - CEREBRAL PALSY [None]
  - NEURODEVELOPMENTAL DISORDER [None]
  - RESPIRATORY RATE INCREASED [None]
  - REVERSE TRI-IODOTHYRONINE DECREASED [None]
  - THYROID FUNCTION TEST ABNORMAL [None]
  - TRI-IODOTHYRONINE DECREASED [None]
